FAERS Safety Report 19772892 (Version 1)
Quarter: 2021Q3

REPORT INFORMATION
  Report Type: Other
  Country: FI (occurrence: FI)
  Receive Date: 20210901
  Receipt Date: 20210901
  Transmission Date: 20211014
  Serious: Yes (Other)
  Sender: FDA-Public Use
  Company Number: FI-CELLTRION INC.-2021FI011566

PATIENT

DRUGS (4)
  1. RITUXIMAB. [Suspect]
     Active Substance: RITUXIMAB
     Indication: MULTIPLE SCLEROSIS
     Dosage: 1000 MG
     Route: 042
     Dates: start: 20190131
  2. RITUXIMAB. [Suspect]
     Active Substance: RITUXIMAB
     Dosage: 500 MG, SECOND INFUSION
     Route: 042
     Dates: start: 20190705
  3. RITUXIMAB. [Suspect]
     Active Substance: RITUXIMAB
     Dosage: 500 MG, 4TH INFUSION
     Route: 042
     Dates: start: 20200820
  4. RITUXIMAB. [Suspect]
     Active Substance: RITUXIMAB
     Dosage: 500 MG, 3RD INFUSION
     Route: 042
     Dates: start: 20200127

REACTIONS (4)
  - Off label use [Unknown]
  - Blood immunoglobulin M decreased [Recovered/Resolved]
  - Diverticulitis [Recovered/Resolved]
  - Blood immunoglobulin A decreased [Recovered/Resolved]
